FAERS Safety Report 13002067 (Version 4)
Quarter: 2017Q1

REPORT INFORMATION
  Report Type: Spontaneous
  Country: IT (occurrence: IT)
  Receive Date: 20161206
  Receipt Date: 20170105
  Transmission Date: 20170428
  Serious: Yes (Death, Other)
  Sender: FDA-Public Use
  Company Number: IT-TEVA-715670ACC

PATIENT
  Age: 75 Year
  Sex: Male

DRUGS (9)
  1. HYDROCHLOROTHIAZIDE, AMILORIDE [Concomitant]
     Active Substance: AMILORIDE HYDROCHLORIDE\HYDROCHLOROTHIAZIDE
     Dosage: 50MG/DAY AND 5 MG/DAY, RESPECTIVELY
     Route: 065
  2. CICLOSPORIN [Suspect]
     Active Substance: CYCLOSPORINE
     Dosage: 200 MILLIGRAM DAILY;
     Route: 065
  3. FELODIPINA [Concomitant]
     Active Substance: FELODIPINE
     Dosage: 5 MILLIGRAM DAILY;
     Route: 065
  4. AZATIOPRINA [Suspect]
     Active Substance: AZATHIOPRINE
     Dosage: 100 MILLIGRAM DAILY;
     Route: 065
  5. ATORVASTATIN [Concomitant]
     Active Substance: ATORVASTATIN
     Dosage: 5 MILLIGRAM DAILY;
     Route: 065
  6. APIRIN [Concomitant]
     Dosage: 150 MILLIGRAM DAILY;
     Route: 065
  7. CICLOSPORIN [Suspect]
     Active Substance: CYCLOSPORINE
     Indication: IMMUNOSUPPRESSANT DRUG THERAPY
     Dosage: 200 MILLIGRAM DAILY;
  8. PREDNISONE. [Suspect]
     Active Substance: PREDNISONE
     Indication: IMMUNOSUPPRESSANT DRUG THERAPY
     Route: 065
  9. AZATIOPRINA [Suspect]
     Active Substance: AZATHIOPRINE
     Indication: IMMUNOSUPPRESSANT DRUG THERAPY
     Dosage: 100 MILLIGRAM DAILY;

REACTIONS (4)
  - Condition aggravated [Unknown]
  - Pulmonary function test decreased [Unknown]
  - Respiratory failure [Fatal]
  - Idiopathic pulmonary fibrosis [Fatal]
